FAERS Safety Report 5033025-6 (Version None)
Quarter: 2006Q2

REPORT INFORMATION
  Report Type: 
  Country: None (occurrence: None)
  Receive Date: 20060622
  Receipt Date: 20050406
  Transmission Date: 20061013
  Serious: Yes (Hospitalization, Disabling)
  Sender: FDA-Public Use
  Company Number: US-ROCHE-401236

PATIENT
  Age: 18 Year
  Sex: Female
  Weight: 81.6 kg

DRUGS (4)
  1. ACCUTANE [Suspect]
     Route: 048
     Dates: start: 19941021, end: 19941215
  2. ACCUTANE [Suspect]
     Dosage: INDICATION REPORTED AS ACNE.
     Route: 048
     Dates: start: 19950315
  3. ACCUTANE [Suspect]
     Route: 048
     Dates: start: 19960610, end: 19960621
  4. DESOGEN [Concomitant]
     Route: 048
     Dates: start: 19891023

REACTIONS (29)
  - ABORTION SPONTANEOUS [None]
  - ACROCHORDON [None]
  - BLOOD ALBUMIN DECREASED [None]
  - BLOOD CALCIUM DECREASED [None]
  - COLITIS [None]
  - CONSTIPATION [None]
  - CROHN'S DISEASE [None]
  - DRUG EXPOSURE BEFORE PREGNANCY [None]
  - GASTROINTESTINAL DISORDER [None]
  - HAEMORRHOIDS [None]
  - HERPES ZOSTER [None]
  - INFERTILITY [None]
  - INFLAMMATORY BOWEL DISEASE [None]
  - INTESTINAL HAEMORRHAGE [None]
  - MEDICATION RESIDUE [None]
  - MULTI-ORGAN DISORDER [None]
  - NAUSEA [None]
  - OESOPHAGEAL CANDIDIASIS [None]
  - ORAL CANDIDIASIS [None]
  - PAIN IN EXTREMITY [None]
  - PALPITATIONS [None]
  - PARAESTHESIA [None]
  - PLANTAR FASCIITIS [None]
  - POLYCYSTIC OVARIES [None]
  - PRURITUS GENERALISED [None]
  - RECTAL HAEMORRHAGE [None]
  - URINARY TRACT INFECTION [None]
  - VOMITING [None]
  - WEIGHT DECREASED [None]
